FAERS Safety Report 14884696 (Version 2)
Quarter: 2018Q2

REPORT INFORMATION
  Report Type: Spontaneous
  Country: US (occurrence: US)
  Receive Date: 20180511
  Receipt Date: 20180612
  Transmission Date: 20180711
  Serious: Yes (Other)
  Sender: FDA-Public Use
  Company Number: US-AKORN PHARMACEUTICALS-2018AKN00614

PATIENT
  Sex: Male
  Weight: 62.7 kg

DRUGS (2)
  1. MYORISAN [Suspect]
     Active Substance: ISOTRETINOIN
     Indication: ACNE
     Dosage: 30 MG, 2X/DAY
     Route: 048
     Dates: start: 20180303, end: 20180421
  2. BP WASH [Concomitant]
     Active Substance: BENZOYL PEROXIDE
     Dosage: 1 TO 2 TIMES PER DAY

REACTIONS (4)
  - Depressed mood [Recovering/Resolving]
  - Anger [Recovering/Resolving]
  - Mood altered [Recovering/Resolving]
  - Agitation [Recovering/Resolving]

NARRATIVE: CASE EVENT DATE: 2018
